FAERS Safety Report 15582819 (Version 1)
Quarter: 2018Q4

REPORT INFORMATION
  Report Type: Spontaneous
  Country: NL (occurrence: NL)
  Receive Date: 20181103
  Receipt Date: 20181103
  Transmission Date: 20190205
  Serious: Yes (Other)
  Sender: FDA-Public Use
  Company Number: NL-AUROBINDO-AUR-APL-2018-053135

PATIENT
  Age: 85 Year
  Sex: Female

DRUGS (5)
  1. ACENOCOUMAROL [Concomitant]
     Active Substance: ACENOCOUMAROL
     Indication: PRODUCT USED FOR UNKNOWN INDICATION
     Dosage: 1 DOSAGE FORM, (ACCORDING TO PRESCRIPTION THROMBOSIS SERVICE)
     Route: 065
  2. CARNITENE                          /00718102/ [Concomitant]
     Indication: PRODUCT USED FOR UNKNOWN INDICATION
     Dosage: 660 MILLIGRAM, DAILY, (2DD 330MG)
     Route: 065
  3. EMCOR [Concomitant]
     Active Substance: BISOPROLOL
     Indication: PRODUCT USED FOR UNKNOWN INDICATION
     Dosage: 1 DOSAGE FORM, TWO TIMES A DAY, (1,5 + 1 TABLET)
     Route: 065
  4. QUINAPRIL 10 MG TABLET [Suspect]
     Active Substance: QUINAPRIL
     Indication: ATRIAL FIBRILLATION
     Dosage: 10 MILLIGRAM
     Route: 065
     Dates: start: 20170206
  5. FUROSEMIDE. [Concomitant]
     Active Substance: FUROSEMIDE
     Indication: PRODUCT USED FOR UNKNOWN INDICATION
     Dosage: 80 MILLIGRAM, TWO TIMES A DAY, (2 PER DAG)
     Route: 065

REACTIONS (5)
  - Headache [Recovering/Resolving]
  - Balance disorder [Recovering/Resolving]
  - Blood pressure increased [Recovering/Resolving]
  - Abdominal pain [Recovering/Resolving]
  - Therapeutic response unexpected [Recovering/Resolving]

NARRATIVE: CASE EVENT DATE: 20170208
